FAERS Safety Report 9764219 (Version 3)
Quarter: 2014Q1

REPORT INFORMATION
  Report Type: Spontaneous
  Country: FR (occurrence: FR)
  Receive Date: 20131216
  Receipt Date: 20140210
  Transmission Date: 20141002
  Serious: Yes (Other)
  Sender: FDA-Public Use
  Company Number: FR-PFIZER INC-2013354781

PATIENT
  Age: 76 Year
  Sex: Female

DRUGS (1)
  1. CELEBREX [Suspect]
     Indication: MUSCULOSKELETAL PAIN
     Dosage: 2 DF, DAILY
     Route: 048
     Dates: start: 2012, end: 201205

REACTIONS (6)
  - Constipation [Recovered/Resolved]
  - Dysuria [Recovered/Resolved]
  - Cystitis [Recovered/Resolved]
  - Bladder pain [Recovered/Resolved]
  - Pollakiuria [Not Recovered/Not Resolved]
  - Malaise [Unknown]
